FAERS Safety Report 8421953-0 (Version None)
Quarter: 2012Q2

REPORT INFORMATION
  Report Type: 
  Country: None (occurrence: None)
  Receive Date: 20120601
  Receipt Date: 20120522
  Transmission Date: 20120825
  Serious: Yes (Other)
  Sender: FDA-Public Use
  Company Number: AUR-APL-2012-02412

PATIENT
  Sex: 0

DRUGS (2)
  1. OMACOR [Suspect]
     Indication: BLOOD TRIGLYCERIDES INCREASED
     Dosage: 8000 MG (8000 MG, 1 IN 1 D), TRANSPLACENTAL   8000 MG (8000 MG, 1 IN 1 D), TRANSMAMMARY
     Route: 064
  2. METFORMIN HCL [Suspect]
     Indication: BLOOD TRIGLYCERIDES INCREASED
     Dosage: 1000 MG (1000 MG, 1 IN 1 D), TRANSPLACENTAL   1000 MG (1000 MG, 1 IN 1 D), TRANSMAMMARY
     Route: 064

REACTIONS (4)
  - EXPOSURE DURING BREAST FEEDING [None]
  - MATERNAL DRUGS AFFECTING FOETUS [None]
  - CAESAREAN SECTION [None]
  - PREMATURE BABY [None]
